FAERS Safety Report 5017059-3 (Version None)
Quarter: 2006Q2

REPORT INFORMATION
  Report Type: 
  Country: None (occurrence: None)
  Receive Date: 20060414
  Receipt Date: 20060209
  Transmission Date: 20061013
  Serious: No
  Sender: FDA-Public Use
  Company Number: 2006SP000722

PATIENT
  Age: 77 Year
  Sex: Female
  Weight: 59.8748 kg

DRUGS (9)
  1. LUNESTA [Suspect]
     Indication: INSOMNIA
     Dosage: 3 MG;ORAL
     Route: 048
     Dates: start: 20051115
  2. SYNTHROID [Concomitant]
  3. ACIPHEX [Concomitant]
  4. FOSAMAX [Concomitant]
  5. ATORVASTATIN CALCIUM [Concomitant]
  6. ATENOLOL [Concomitant]
  7. MEXZIDE [Concomitant]
  8. TRAZODONE HCL [Concomitant]
  9. VICODIN [Concomitant]

REACTIONS (2)
  - HEADACHE [None]
  - HYPERTENSION [None]
